FAERS Safety Report 10476420 (Version 2)
Quarter: 2014Q4

REPORT INFORMATION
  Report Type: Spontaneous
  Country: US (occurrence: US)
  Receive Date: 20140925
  Receipt Date: 20141010
  Transmission Date: 20150528
  Serious: No
  Sender: FDA-Public Use
  Company Number: US-TEVA-511804USA

PATIENT
  Age: 20 Year
  Sex: Female
  Weight: 59.02 kg

DRUGS (2)
  1. PLAN B ONE-STEP [Suspect]
     Active Substance: LEVONORGESTREL
     Indication: POST COITAL CONTRACEPTION
     Dosage: 1.5 MILLIGRAM DAILY;
     Route: 048
     Dates: start: 20140915, end: 20140915
  2. SOLODYN [Concomitant]
     Active Substance: MINOCYCLINE HYDROCHLORIDE
     Indication: ACNE

REACTIONS (2)
  - Back pain [Recovered/Resolved]
  - Inappropriate schedule of drug administration [Recovered/Resolved]

NARRATIVE: CASE EVENT DATE: 20140915
